FAERS Safety Report 6187579-7 (Version None)
Quarter: 2009Q2

REPORT INFORMATION
  Report Type: 
  Country: None (occurrence: None)
  Receive Date: 20090508
  Receipt Date: 20090427
  Transmission Date: 20091009
  Serious: Yes (Hospitalization, Other)
  Sender: FDA-Public Use
  Company Number: PAR_02961_2009

PATIENT
  Age: 50 Year
  Sex: Female

DRUGS (6)
  1. IBUPROFEN [Suspect]
     Indication: SINUSITIS
     Dosage: (DF)
  2. AMOXICILLIN AND CLAVULANATE POTASSIUM [Suspect]
     Indication: SINUSITIS
     Dosage: (DF)
  3. METAMIZOLE (METAMIZOLE) [Suspect]
     Indication: SINUSITIS
     Dosage: (DF INTRAMUSCULAR)
     Route: 030
  4. ADRENALINE /00003901/ (ADRENALINE) [Suspect]
     Indication: ANAPHYLACTIC SHOCK
     Dosage: (1 MG 1X SUBCUTANEOUS)
     Route: 058
  5. SALMETEROL [Concomitant]
  6. FLUTICASONE [Concomitant]

REACTIONS (6)
  - ANAPHYLACTIC SHOCK [None]
  - DRUG INTOLERANCE [None]
  - KOUNIS SYNDROME [None]
  - MYOCARDIAL INFARCTION [None]
  - SINUS BRADYCARDIA [None]
  - VENTRICULAR TACHYCARDIA [None]
